FAERS Safety Report 13008247 (Version 1)
Quarter: 2016Q4

REPORT INFORMATION
  Report Type: Spontaneous
  Country: US (occurrence: US)
  Receive Date: 20161208
  Receipt Date: 20161208
  Transmission Date: 20170207
  Serious: No
  Sender: FDA-Public Use
  Company Number: US-009507513-1611USA010714

PATIENT
  Sex: Male

DRUGS (14)
  1. NOXAFIL [Suspect]
     Active Substance: POSACONAZOLE
     Indication: MYCOSIS FUNGOIDES
     Dosage: UNK
     Route: 048
     Dates: start: 201502, end: 20161110
  2. HUMULIN R [Concomitant]
     Active Substance: INSULIN HUMAN
  3. CYMBALTA [Concomitant]
     Active Substance: DULOXETINE HYDROCHLORIDE
  4. NEXIUM [Concomitant]
     Active Substance: ESOMEPRAZOLE MAGNESIUM
  5. VALIUM [Concomitant]
     Active Substance: DIAZEPAM
  6. MAGNESIUM (UNSPECIFIED) [Concomitant]
     Active Substance: MAGNESIUM
  7. METHYLPREDNISOLONE. [Concomitant]
     Active Substance: METHYLPREDNISOLONE
  8. PROGRAF [Concomitant]
     Active Substance: TACROLIMUS\TACROLIMUS ANHYDROUS
  9. ATORVASTATIN [Concomitant]
     Active Substance: ATORVASTATIN
  10. LASIX [Concomitant]
     Active Substance: FUROSEMIDE
  11. VALACYCLOVIR HYDROCHLORIDE. [Concomitant]
     Active Substance: VALACYCLOVIR HYDROCHLORIDE
  12. TRAMADOL HYDROCHLORIDE (+) KETOROLAC TROMETHAMINE [Concomitant]
     Route: 048
  13. XARELTO [Concomitant]
     Active Substance: RIVAROXABAN
  14. BACTRIM [Concomitant]
     Active Substance: SULFAMETHOXAZOLE\TRIMETHOPRIM

REACTIONS (2)
  - Cataract [Not Recovered/Not Resolved]
  - Visual impairment [Not Recovered/Not Resolved]
